FAERS Safety Report 4752329-5 (Version None)
Quarter: 2005Q3

REPORT INFORMATION
  Report Type: 
  Country: None (occurrence: None)
  Receive Date: 20050825
  Receipt Date: 20050324
  Transmission Date: 20060218
  Serious: Yes (Other)
  Sender: FDA-Public Use
  Company Number: SER/8/3904

PATIENT
  Sex: Female

DRUGS (1)
  1. PAROXETINE [Suspect]
     Indication: DEPRESSION
     Route: 065
     Dates: start: 19970101

REACTIONS (6)
  - DISTURBANCE IN ATTENTION [None]
  - ILL-DEFINED DISORDER [None]
  - INTENTIONAL MISUSE [None]
  - SUICIDAL IDEATION [None]
  - TEARFULNESS [None]
  - WEIGHT INCREASED [None]
